FAERS Safety Report 4581233-0 (Version None)
Quarter: 2005Q1

REPORT INFORMATION
  Report Type: 
  Country: None (occurrence: None)
  Receive Date: 20050127
  Receipt Date: 20040908
  Transmission Date: 20050727
  Serious: No
  Sender: FDA-Public Use
  Company Number: USA040977619

PATIENT
  Age: 62 Year
  Sex: Male
  Weight: 102 kg

DRUGS (2)
  1. STRATTERA [Suspect]
     Dosage: 80 MG DAY
  2. HYDROCHLOROTHIAZIDE [Concomitant]

REACTIONS (2)
  - DECREASED APPETITE [None]
  - PRURITUS [None]
